FAERS Safety Report 18773727 (Version 1)
Quarter: 2021Q1

REPORT INFORMATION
  Report Type: Spontaneous
  Country: US (occurrence: US)
  Receive Date: 20210122
  Receipt Date: 20210122
  Transmission Date: 20210419
  Serious: Yes (Death)
  Sender: FDA-Public Use
  Company Number: None

PATIENT
  Age: 61 Year
  Sex: Female
  Weight: 104.8 kg

DRUGS (2)
  1. DAUNORUBICIN [Suspect]
     Active Substance: DAUNORUBICIN
     Dates: end: 20210110
  2. CYTARABINE. [Suspect]
     Active Substance: CYTARABINE
     Dates: end: 20210114

REACTIONS (11)
  - Neutropenia [None]
  - Tachycardia [None]
  - Hypoxia [None]
  - Blast cells present [None]
  - Thrombocytopenia [None]
  - Tachypnoea [None]
  - Pulmonary oedema [None]
  - Pulmonary alveolar haemorrhage [None]
  - Dyspnoea [None]
  - Infection [None]
  - Acute respiratory distress syndrome [None]

NARRATIVE: CASE EVENT DATE: 20210119
